FAERS Safety Report 10420679 (Version 1)
Quarter: 2014Q3

REPORT INFORMATION
  Report Type: Spontaneous
  Country: US (occurrence: None)
  Receive Date: 20140829
  Receipt Date: 20140829
  Transmission Date: 20150326
  Serious: Yes (Life-Threatening, Disabling)
  Sender: FDA-Public Use
  Company Number: None

PATIENT
  Age: 64 Year
  Sex: Female
  Weight: 62.6 kg

DRUGS (1)
  1. GEODON [Suspect]
     Active Substance: ZIPRASIDONE HYDROCHLORIDE\ZIPRASIDONE MESYLATE
     Indication: BIPOLAR DISORDER
     Dosage: 3   1 IN AM, 2 @ 5PM  TAKEN BY MOUTH
     Route: 048
     Dates: start: 20090430, end: 20140515

REACTIONS (8)
  - Feeling abnormal [None]
  - Formication [None]
  - Balance disorder [None]
  - Insomnia [None]
  - Madarosis [None]
  - Heart rate irregular [None]
  - Osteoporosis [None]
  - Alopecia [None]

NARRATIVE: CASE EVENT DATE: 20140828
